FAERS Safety Report 8007533-X (Version None)
Quarter: 2011Q4

REPORT INFORMATION
  Report Type: 
  Country: None (occurrence: None)
  Receive Date: 20111227
  Receipt Date: 20111216
  Transmission Date: 20120403
  Serious: Yes (Hospitalization)
  Sender: FDA-Public Use
  Company Number: US-BAYER-2011-049724

PATIENT
  Age: 25 Year
  Sex: Female
  Weight: 96.599 kg

DRUGS (2)
  1. YAZ [Suspect]
     Dosage: UNK
     Dates: start: 20080801, end: 20100701
  2. MEDROXYPROGESTERONE [Concomitant]
     Dosage: 10 MG, UNK

REACTIONS (4)
  - CHOLECYSTITIS CHRONIC [None]
  - CHOLELITHIASIS [None]
  - PAIN [None]
  - INJURY [None]
